FAERS Safety Report 15344255 (Version 1)
Quarter: 2018Q3

REPORT INFORMATION
  Report Type: Spontaneous
  Country: GB (occurrence: GB)
  Receive Date: 20180903
  Receipt Date: 20180903
  Transmission Date: 20181010
  Serious: Yes (Other)
  Sender: FDA-Public Use
  Company Number: GB-TEVA-2018-GB-950649

PATIENT
  Age: 74 Year
  Sex: Male

DRUGS (1)
  1. MYFENAX [Suspect]
     Active Substance: MYCOPHENOLATE MOFETIL
     Route: 065

REACTIONS (6)
  - Drug ineffective [Unknown]
  - Headache [Unknown]
  - Genital pain [Unknown]
  - Asthma [Unknown]
  - Insomnia [Unknown]
  - Pain in extremity [Unknown]
